FAERS Safety Report 12650855 (Version 1)
Quarter: 2016Q3

REPORT INFORMATION
  Report Type: Spontaneous
  Country: US (occurrence: US)
  Receive Date: 20160815
  Receipt Date: 20160815
  Transmission Date: 20161109
  Serious: No
  Sender: FDA-Public Use
  Company Number: US-JAZZ-2016-US-004930

PATIENT
  Age: 54 Year
  Sex: Female

DRUGS (26)
  1. XYREM [Suspect]
     Active Substance: SODIUM OXYBATE
     Dosage: 1.75 G, FIRST DOSE
     Route: 048
     Dates: start: 201603
  2. CYCLOBENZAPRINE [Concomitant]
     Active Substance: CYCLOBENZAPRINE
  3. XYREM [Suspect]
     Active Substance: SODIUM OXYBATE
     Indication: FIBROMYALGIA
     Dosage: 3 G, BID
     Route: 048
     Dates: start: 200510, end: 2005
  4. DOXEPIN [Concomitant]
     Active Substance: DOXEPIN
  5. LIDOCAINE. [Concomitant]
     Active Substance: LIDOCAINE
  6. NYSTATIN. [Concomitant]
     Active Substance: NYSTATIN
  7. DIFLUCAN [Concomitant]
     Active Substance: FLUCONAZOLE
  8. XYREM [Suspect]
     Active Substance: SODIUM OXYBATE
     Dosage: 5.5 G, BID
     Route: 048
     Dates: start: 200804, end: 200812
  9. XYREM [Suspect]
     Active Substance: SODIUM OXYBATE
     Dosage: 6.25 G, BID
     Route: 048
     Dates: start: 200812, end: 2009
  10. XODOL [Concomitant]
     Active Substance: ACETAMINOPHEN\HYDROCODONE BITARTRATE
  11. TESTOSTERONE. [Concomitant]
     Active Substance: TESTOSTERONE
  12. TRIAMCINOLONE ACETONIDE. [Concomitant]
     Active Substance: TRIAMCINOLONE ACETONIDE
  13. XYREM [Suspect]
     Active Substance: SODIUM OXYBATE
     Dosage: 4.5 G, SECOND DOSE
     Route: 048
     Dates: start: 201603
  14. IBUPROFEN. [Concomitant]
     Active Substance: IBUPROFEN
  15. PROGESTERONE. [Concomitant]
     Active Substance: PROGESTERONE
  16. NUVIGIL [Concomitant]
     Active Substance: ARMODAFINIL
  17. PROVIGIL [Concomitant]
     Active Substance: MODAFINIL
  18. TEMAZEPAM. [Concomitant]
     Active Substance: TEMAZEPAM
  19. EFFEXOR XR [Concomitant]
     Active Substance: VENLAFAXINE HYDROCHLORIDE
  20. XYREM [Suspect]
     Active Substance: SODIUM OXYBATE
     Dosage: 4.5 G, BID
     Route: 048
     Dates: start: 200605, end: 200804
  21. XYREM [Suspect]
     Active Substance: SODIUM OXYBATE
     Dosage: 6.25 G, BID
     Route: 048
     Dates: start: 200909, end: 201411
  22. CORTISOL SR [Concomitant]
  23. XYREM [Suspect]
     Active Substance: SODIUM OXYBATE
     Dosage: DOSE ADJUSTMENTS
     Route: 048
  24. VITAMIN D3 [Concomitant]
     Active Substance: CHOLECALCIFEROL
  25. AMBIEN [Concomitant]
     Active Substance: ZOLPIDEM TARTRATE
  26. LORTAB [Concomitant]
     Active Substance: ACETAMINOPHEN\HYDROCODONE BITARTRATE

REACTIONS (1)
  - Malaise [Not Recovered/Not Resolved]

NARRATIVE: CASE EVENT DATE: 201511
